FAERS Safety Report 14712656 (Version 1)
Quarter: 2018Q2

REPORT INFORMATION
  Report Type: Report from Study
  Country: US (occurrence: US)
  Receive Date: 20180404
  Receipt Date: 20180404
  Transmission Date: 20180711
  Serious: No
  Sender: FDA-Public Use
  Company Number: PHEH2018US012781

PATIENT
  Age: 56 Year
  Sex: Male

DRUGS (2)
  1. COSENTYX [Suspect]
     Active Substance: SECUKINUMAB
     Indication: PSORIATIC ARTHROPATHY
     Dosage: 150 MG (1 PEN), Q2W
     Route: 065
  2. COSENTYX [Suspect]
     Active Substance: SECUKINUMAB
     Indication: PSORIASIS
     Dosage: 300 MG (TWO PENS), Q4W
     Route: 065

REACTIONS (4)
  - Drug ineffective [Unknown]
  - Rash macular [Not Recovered/Not Resolved]
  - Swelling [Not Recovered/Not Resolved]
  - Skin plaque [Not Recovered/Not Resolved]
